FAERS Safety Report 17355683 (Version 1)
Quarter: 2020Q1

REPORT INFORMATION
  Report Type: Spontaneous
  Country: BR (occurrence: BR)
  Receive Date: 20200131
  Receipt Date: 20200131
  Transmission Date: 20200409
  Serious: Yes (Other)
  Sender: FDA-Public Use
  Company Number: BR-AMGEN-BRASP2020014843

PATIENT
  Sex: Female

DRUGS (1)
  1. PROLIA [Suspect]
     Active Substance: DENOSUMAB
     Indication: OSTEOPOROSIS
     Dosage: UNK
     Route: 065

REACTIONS (18)
  - C-reactive protein increased [Unknown]
  - Hypoaesthesia [Recovered/Resolved]
  - Pyrexia [Unknown]
  - Cystitis [Unknown]
  - Alopecia [Unknown]
  - Ear pain [Recovered/Resolved]
  - Skin irritation [Recovered/Resolved]
  - Hepatic pain [Unknown]
  - Dyspnoea [Unknown]
  - Abdominal pain upper [Unknown]
  - Abdominal distension [Unknown]
  - Muscle spasms [Recovered/Resolved]
  - Arthralgia [Unknown]
  - Blood pressure increased [Unknown]
  - Burning sensation [Recovered/Resolved]
  - Diarrhoea [Unknown]
  - Renal pain [Unknown]
  - Constipation [Recovered/Resolved]

NARRATIVE: CASE EVENT DATE: 201910
